FAERS Safety Report 15107423 (Version 7)
Quarter: 2018Q4

REPORT INFORMATION
  Report Type: Report from Study
  Country: None (occurrence: US)
  Receive Date: 20180704
  Receipt Date: 20181122
  Transmission Date: 20190204
  Serious: Yes (Other)
  Sender: FDA-Public Use
  Company Number: US-ABBVIE-18K-163-2409217-00

PATIENT
  Age: 55 Year
  Sex: Female
  Weight: 95.79 kg

DRUGS (7)
  1. HUMIRA [Suspect]
     Active Substance: ADALIMUMAB
     Route: 058
     Dates: start: 20181109
  2. ATORVASTATIN [Concomitant]
     Active Substance: ATORVASTATIN
     Indication: BLOOD CHOLESTEROL INCREASED
     Route: 065
  3. HUMIRA [Suspect]
     Active Substance: ADALIMUMAB
     Indication: PSORIASIS
     Route: 058
     Dates: start: 2016, end: 201704
  4. VENTOLIN [Concomitant]
     Active Substance: ALBUTEROL SULFATE
     Indication: TRAUMATIC LUNG INJURY
     Route: 065
  5. LISINOPRIL. [Concomitant]
     Active Substance: LISINOPRIL
     Indication: HYPERTENSION
     Route: 065
  6. JANUMET [Concomitant]
     Active Substance: METFORMIN HYDROCHLORIDE\SITAGLIPTIN PHOSPHATE
     Indication: DIABETES MELLITUS
     Route: 065
  7. HUMIRA [Suspect]
     Active Substance: ADALIMUMAB
     Route: 058
     Dates: start: 20170801

REACTIONS (14)
  - Skin laceration [Recovering/Resolving]
  - Intra-abdominal haematoma [Not Recovered/Not Resolved]
  - Rib fracture [Recovering/Resolving]
  - Haematoma [Not Recovered/Not Resolved]
  - Pneumothorax [Recovered/Resolved]
  - Joint injury [Recovering/Resolving]
  - Traumatic haematoma [Unknown]
  - Breast injury [Not Recovered/Not Resolved]
  - Lip haematoma [Recovering/Resolving]
  - Post-traumatic neck syndrome [Not Recovered/Not Resolved]
  - Contusion [Not Recovered/Not Resolved]
  - Road traffic accident [Recovered/Resolved]
  - Haematoma [Recovering/Resolving]
  - Injury [Unknown]

NARRATIVE: CASE EVENT DATE: 2018
